FAERS Safety Report 8419849-3 (Version None)
Quarter: 2012Q2

REPORT INFORMATION
  Report Type: 
  Country: None (occurrence: None)
  Receive Date: 20120607
  Receipt Date: 20120601
  Transmission Date: 20120825
  Serious: No
  Sender: FDA-Public Use
  Company Number: US-PFIZER INC-2012030470

PATIENT
  Sex: Female
  Weight: 84.354 kg

DRUGS (8)
  1. IBUPROFEN (ADVIL) [Suspect]
     Dosage: TWO CAPSULES OF 200 MG ONCE
     Route: 048
     Dates: start: 20120202
  2. IBUPROFEN (ADVIL) [Suspect]
     Indication: BACK PAIN
  3. IBUPROFEN (ADVIL) [Suspect]
     Indication: RHINORRHOEA
  4. IBUPROFEN (ADVIL) [Suspect]
     Indication: SWELLING
     Dosage: 2 CAPSULES EVERY 6 HOURS
     Route: 048
     Dates: start: 20120101, end: 20120203
  5. GLUCOPHAGE [Concomitant]
     Indication: DIABETES MELLITUS
     Dosage: 500 MG, 2X/DAY
  6. GLIPIZIDE [Concomitant]
     Indication: DIABETES MELLITUS
     Dosage: 10 MG
  7. INSULIN DETEMIR [Concomitant]
     Indication: DIABETES MELLITUS
     Dosage: 60 IU, DAILY
  8. IBUPROFEN (ADVIL) [Suspect]
     Indication: PAIN
     Dosage: 2 CAPSULES EVERY 6 HOURS
     Route: 048
     Dates: start: 20120101, end: 20120201

REACTIONS (4)
  - POOR QUALITY DRUG ADMINISTERED [None]
  - VOMITING [None]
  - NAUSEA [None]
  - MALAISE [None]
